FAERS Safety Report 13061742 (Version 1)
Quarter: 2016Q4

REPORT INFORMATION
  Report Type: Spontaneous
  Country: US (occurrence: US)
  Receive Date: 20161226
  Receipt Date: 20161226
  Transmission Date: 20170207
  Serious: No
  Sender: FDA-Public Use
  Company Number: US-NOVEN PHARMACEUTICALS, INC.-US2016002334

PATIENT

DRUGS (6)
  1. PREGNYL [Concomitant]
     Active Substance: CHORIOGONADOTROPIN ALFA
     Indication: IN VITRO FERTILISATION
     Dosage: UNK, TAKEN TWO TIMES (ONE YESTERDAY AND ONE TOMORROW)
  2. MINIVELLE [Suspect]
     Active Substance: ESTRADIOL
     Indication: IN VITRO FERTILISATION
     Dosage: 4 PATCHES OF 0.1MG, QOD
     Route: 062
     Dates: start: 201609, end: 201609
  3. CRINONE [Concomitant]
     Active Substance: PROGESTERONE
     Indication: IN VITRO FERTILISATION
     Dosage: UNK, BID
  4. VITAMIN D [Concomitant]
     Active Substance: CHOLECALCIFEROL
     Indication: IN VITRO FERTILISATION
  5. MINIVELLE [Suspect]
     Active Substance: ESTRADIOL
     Dosage: 2 PATCHES OF 0.1MG, QOD
     Route: 062
     Dates: start: 201609
  6. ASPIRIN. [Concomitant]
     Active Substance: ASPIRIN
     Indication: IN VITRO FERTILISATION

REACTIONS (5)
  - Wrong technique in product usage process [Not Recovered/Not Resolved]
  - No adverse event [Unknown]
  - Inappropriate schedule of drug administration [Not Recovered/Not Resolved]
  - Off label use [Unknown]
  - Prescribed overdose [Not Recovered/Not Resolved]

NARRATIVE: CASE EVENT DATE: 201609
